FAERS Safety Report 18807014 (Version 3)
Quarter: 2021Q2

REPORT INFORMATION
  Report Type: Report from Study
  Country: US (occurrence: US)
  Receive Date: 20210129
  Receipt Date: 20210623
  Transmission Date: 20210717
  Serious: No
  Sender: FDA-Public Use
  Company Number: US-BIOVITRUM-2020US7539

PATIENT
  Sex: Male

DRUGS (1)
  1. KINERET [Suspect]
     Active Substance: ANAKINRA
     Indication: RHEUMATOID ARTHRITIS
     Route: 058
     Dates: start: 20201128

REACTIONS (9)
  - Fatigue [Unknown]
  - Swelling [Unknown]
  - Rash [Unknown]
  - Feeling abnormal [Unknown]
  - Musculoskeletal stiffness [Unknown]
  - Pain of skin [Unknown]
  - Contusion [Unknown]
  - Arthralgia [Unknown]
  - Drug ineffective [Unknown]
